FAERS Safety Report 15539692 (Version 1)
Quarter: 2018Q4

REPORT INFORMATION
  Report Type: Spontaneous
  Country: FR (occurrence: FR)
  Receive Date: 20181023
  Receipt Date: 20181023
  Transmission Date: 20190205
  Serious: Yes (Life-Threatening)
  Sender: FDA-Public Use
  Company Number: FR-SUN PHARMACEUTICAL INDUSTRIES LTD-2018RR-188322

PATIENT
  Age: 86 Year
  Sex: Male
  Weight: 108 kg

DRUGS (5)
  1. CEFIXIME. [Suspect]
     Active Substance: CEFIXIME
     Indication: PROSTATITIS
     Dosage: 400 MG, DAILY
     Route: 048
     Dates: start: 20180806, end: 20180807
  2. TAMOXIFENE BASE [Suspect]
     Active Substance: TAMOXIFEN
     Indication: PROSTATE CANCER
     Dosage: 20 MG, 1/WEEK
     Route: 048
     Dates: start: 20180522
  3. CIPROFLOXACINE [Suspect]
     Active Substance: CIPROFLOXACIN
     Indication: PROSTATITIS
     Dosage: 1000 MG, DAILY
     Route: 048
     Dates: start: 201807, end: 20180806
  4. BICALUTAMIDE. [Suspect]
     Active Substance: BICALUTAMIDE
     Indication: PROSTATE CANCER
     Dosage: 150 MG, DAILY
     Route: 048
     Dates: start: 20180522
  5. XATRAL LP 10 MG, COMPRIME A LIBERATION PROLONGEE [Suspect]
     Active Substance: ALFUZOSIN
     Indication: PROSTATE CANCER
     Dosage: ()
     Route: 048
     Dates: start: 20180522

REACTIONS (2)
  - Cardiac arrest [Recovered/Resolved]
  - Torsade de pointes [Not Recovered/Not Resolved]

NARRATIVE: CASE EVENT DATE: 20180807
